FAERS Safety Report 25554568 (Version 1)
Quarter: 2025Q3

REPORT INFORMATION
  Report Type: Spontaneous
  Country: JP (occurrence: JP)
  Receive Date: 20250715
  Receipt Date: 20250715
  Transmission Date: 20251020
  Serious: Yes (Hospitalization, Disabling, Other)
  Sender: ALEXION PHARMACEUTICALS
  Company Number: JP-ASTRAZENECA-250041097_063010_P_1

PATIENT
  Age: 63 Year
  Sex: Male
  Weight: 67 kg

DRUGS (8)
  1. DAPAGLIFLOZIN [Interacting]
     Active Substance: DAPAGLIFLOZIN
     Dosage: 5 MILLIGRAM, QD
     Dates: start: 20211122
  2. DAPAGLIFLOZIN [Interacting]
     Active Substance: DAPAGLIFLOZIN
     Dosage: 5 MILLIGRAM, QD
     Dates: start: 20220725, end: 20230115
  3. RYBELSUS [Interacting]
     Active Substance: SEMAGLUTIDE
     Indication: Diabetes mellitus
     Route: 065
  4. RYBELSUS [Interacting]
     Active Substance: SEMAGLUTIDE
     Route: 065
  5. RYBELSUS [Interacting]
     Active Substance: SEMAGLUTIDE
     Route: 065
  6. AZILSARTAN KAMEDOXOMIL [Concomitant]
     Active Substance: AZILSARTAN KAMEDOXOMIL
  7. AMLODIPINE [Concomitant]
     Active Substance: AMLODIPINE BESYLATE
  8. FEBUXOSTAT [Concomitant]
     Active Substance: FEBUXOSTAT

REACTIONS (8)
  - Euglycaemic diabetic ketoacidosis [Recovered/Resolved]
  - Dermatitis [Not Recovered/Not Resolved]
  - Acute kidney injury [Recovered/Resolved]
  - Dehydration [Recovered/Resolved]
  - Infection [Recovered/Resolved]
  - Drug interaction [Unknown]
  - Dizziness [Unknown]
  - Movement disorder [Unknown]

NARRATIVE: CASE EVENT DATE: 20241213
